FAERS Safety Report 11046813 (Version 1)
Quarter: 2015Q2

REPORT INFORMATION
  Report Type: Spontaneous
  Country: US (occurrence: US)
  Receive Date: 20150420
  Receipt Date: 20150420
  Transmission Date: 20150821
  Serious: No
  Sender: FDA-Public Use
  Company Number: US-ALVOGEN-2014AL000614

PATIENT
  Age: 83 Year
  Sex: Female
  Weight: 54.43 kg

DRUGS (5)
  1. ONE A DAY ESSENTIAL /07504101/ [Concomitant]
     Indication: ROUTINE HEALTH MAINTENANCE
  2. NITROFURANTOIN MONOHYDRATE/MACROCRYSTALS [Suspect]
     Active Substance: NITROFURANTOIN\NITROFURANTOIN MONOHYDRATE
     Indication: URINARY TRACT INFECTION
     Route: 048
     Dates: start: 20140326, end: 20140402
  3. VITA-D [Concomitant]
     Indication: ROUTINE HEALTH MAINTENANCE
  4. CALCIUM MAGNESIUM ZINC /01320801/ [Concomitant]
     Indication: ROUTINE HEALTH MAINTENANCE
  5. PREMARIN [Concomitant]
     Active Substance: ESTROGENS, CONJUGATED
     Indication: HORMONE REPLACEMENT THERAPY

REACTIONS (3)
  - Sleep disorder [Recovered/Resolved]
  - Fatigue [Recovered/Resolved]
  - Abnormal dreams [Recovered/Resolved]

NARRATIVE: CASE EVENT DATE: 20140329
